FAERS Safety Report 17965099 (Version 2)
Quarter: 2020Q3

REPORT INFORMATION
  Report Type: Report from Study
  Country: US (occurrence: US)
  Receive Date: 20200630
  Receipt Date: 20200715
  Transmission Date: 20201103
  Serious: Yes (Death, Other)
  Sender: FDA-Public Use
  Company Number: US-ACTELION-A-NJ2020-201223

PATIENT
  Age: 93 Year
  Sex: Female
  Weight: 48.07 kg

DRUGS (2)
  1. OPSUMIT [Suspect]
     Active Substance: MACITENTAN
     Indication: PULMONARY ARTERIAL HYPERTENSION
     Dosage: 10 MG, QD
     Route: 048
  2. REVATIO [Concomitant]
     Active Substance: SILDENAFIL CITRATE

REACTIONS (4)
  - Acetabulum fracture [Unknown]
  - Discomfort [Unknown]
  - Death [Fatal]
  - Ulna fracture [Unknown]

NARRATIVE: CASE EVENT DATE: 20200615
